FAERS Safety Report 24602049 (Version 2)
Quarter: 2024Q4

REPORT INFORMATION
  Report Type: Spontaneous
  Country: CN (occurrence: CN)
  Receive Date: 20241111
  Receipt Date: 20241115
  Transmission Date: 20250115
  Serious: Yes (Hospitalization, Other)
  Sender: TAKEDA
  Company Number: CN-TAKEDA-2024TUS112216

PATIENT
  Age: 39 Year
  Sex: Male
  Weight: 63 kg

DRUGS (9)
  1. ENTYVIO [Suspect]
     Active Substance: VEDOLIZUMAB
     Indication: Colitis ulcerative
     Dosage: 300 MILLIGRAM
  2. ENTYVIO [Suspect]
     Active Substance: VEDOLIZUMAB
     Dosage: 300 MILLIGRAM, Q6WEEKS
     Dates: start: 20210426, end: 20220704
  3. ENTYVIO [Suspect]
     Active Substance: VEDOLIZUMAB
  4. ENTYVIO [Suspect]
     Active Substance: VEDOLIZUMAB
  5. PANTOPRAZOLE SODIUM [Concomitant]
     Active Substance: PANTOPRAZOLE SODIUM
     Indication: Gastrooesophageal reflux disease
     Dosage: 40 MILLIGRAM, QD
     Dates: start: 20220803
  6. Calcium carbonate and vitamin d3 tablets (ii) [Concomitant]
     Indication: Prophylaxis
     Dosage: UNK UNK, QD
     Dates: start: 20220803
  7. CALCITRIOL [Concomitant]
     Active Substance: CALCITRIOL
     Indication: Prophylaxis
     Dosage: 0.25 MICROGRAM, QD
     Dates: start: 20220803
  8. MESALAMINE [Concomitant]
     Active Substance: MESALAMINE
     Indication: Colitis ulcerative
     Dosage: 1 GRAM, QD
  9. MESALAMINE [Concomitant]
     Active Substance: MESALAMINE
     Dosage: 1 GRAM, QD

REACTIONS (2)
  - Interstitial lung disease [Recovering/Resolving]
  - Therapeutic response decreased [Unknown]

NARRATIVE: CASE EVENT DATE: 20200708
